FAERS Safety Report 18572577 (Version 3)
Quarter: 2020Q4

REPORT INFORMATION
  Report Type: Spontaneous
  Country: JP (occurrence: JP)
  Receive Date: 20201202
  Receipt Date: 20201231
  Transmission Date: 20210114
  Serious: Yes (Hospitalization)
  Sender: FDA-Public Use
  Company Number: JP-ASTRAZENECA-2020SF58075

PATIENT
  Age: 75 Year
  Sex: Female
  Weight: 45 kg

DRUGS (8)
  1. SIMVASTATIN. [Concomitant]
     Active Substance: SIMVASTATIN
     Dosage: DOSE UNKNOWN
     Route: 048
  2. CARVEDILOL. [Concomitant]
     Active Substance: CARVEDILOL
     Dosage: DOSE UNKNOWN
     Route: 048
  3. TAGRISSO [Suspect]
     Active Substance: OSIMERTINIB
     Indication: NON-SMALL CELL LUNG CANCER
     Route: 048
     Dates: start: 20190819, end: 20201118
  4. LANTUS XR [Concomitant]
     Active Substance: INSULIN GLARGINE
     Dosage: DOSE UNKNOWN
     Route: 065
  5. TRAZENTA [Concomitant]
     Active Substance: LINAGLIPTIN
     Dosage: DOSE UNKNOWN
     Route: 048
  6. REBAMIPIDE [Concomitant]
     Active Substance: REBAMIPIDE
     Dosage: DOSE UNKNOWN
     Route: 048
  7. LYRICA [Concomitant]
     Active Substance: PREGABALIN
     Dosage: DOSE UNKNOWN
     Route: 048
  8. AMLODIPINE [Concomitant]
     Active Substance: AMLODIPINE BESYLATE
     Dosage: DOSE UNKNOWN
     Route: 048

REACTIONS (3)
  - Cardiac failure [Recovering/Resolving]
  - Atrial fibrillation [Not Recovered/Not Resolved]
  - Cardiomyopathy [Recovering/Resolving]

NARRATIVE: CASE EVENT DATE: 20200322
